FAERS Safety Report 17494277 (Version 1)
Quarter: 2020Q1

REPORT INFORMATION
  Report Type: Spontaneous
  Country: US (occurrence: US)
  Receive Date: 20200221
  Receipt Date: 20200221
  Transmission Date: 20200409
  Serious: Yes (Other)
  Sender: FDA-Public Use
  Company Number: None

PATIENT
  Age: 64 Year
  Sex: Male

DRUGS (25)
  1. SERTRALINE [Concomitant]
     Active Substance: SERTRALINE HYDROCHLORIDE
  2. PANTOPRAZOLE [Concomitant]
     Active Substance: PANTOPRAZOLE
  3. FLOMAX [Concomitant]
     Active Substance: TAMSULOSIN HYDROCHLORIDE
  4. SLOW-MAG [Concomitant]
     Active Substance: MAGNESIUM CHLORIDE
  5. METOCLOPRAMIDE. [Concomitant]
     Active Substance: METOCLOPRAMIDE
  6. COLACE [Concomitant]
     Active Substance: DOCUSATE SODIUM
  7. VITAMIN C [Concomitant]
     Active Substance: ASCORBIC ACID
  8. MORPHINE SR [Concomitant]
     Active Substance: MORPHINE
  9. OPSUMIT [Suspect]
     Active Substance: MACITENTAN
     Indication: PARATYPHOID FEVER
     Route: 048
     Dates: start: 201710
  10. METFORMIN [Concomitant]
     Active Substance: METFORMIN HYDROCHLORIDE
  11. METOPROLOL. [Concomitant]
     Active Substance: METOPROLOL
  12. BISACODYL. [Concomitant]
     Active Substance: BISACODYL
  13. MVI [Concomitant]
     Active Substance: VITAMINS
  14. GLIPIZIDE. [Concomitant]
     Active Substance: GLIPIZIDE
  15. PRADAXA [Concomitant]
     Active Substance: DABIGATRAN ETEXILATE MESYLATE
  16. TRAZODONE [Concomitant]
     Active Substance: TRAZODONE HYDROCHLORIDE
  17. NORTRIPTYLINE [Concomitant]
     Active Substance: NORTRIPTYLINE
  18. HUMULIN R [Concomitant]
     Active Substance: INSULIN HUMAN
  19. HUMULIN N [Concomitant]
     Active Substance: INSULIN HUMAN
  20. ATORVASTATIN [Concomitant]
     Active Substance: ATORVASTATIN
  21. PROMETHAZINE [Concomitant]
     Active Substance: PROMETHAZINE HYDROCHLORIDE
  22. TESTEROSTERONE CYPIONATE [Concomitant]
     Route: 048
     Dates: start: 201710
  23. FUROSEMIDE. [Concomitant]
     Active Substance: FUROSEMIDE
  24. NARCAN [Concomitant]
     Active Substance: NALOXONE HYDROCHLORIDE
  25. TYLENOL [Concomitant]
     Active Substance: ACETAMINOPHEN

REACTIONS (4)
  - Hypoglycaemia [None]
  - Tremor [None]
  - Urinary tract infection [None]
  - Back pain [None]

NARRATIVE: CASE EVENT DATE: 20200130
